FAERS Safety Report 18811068 (Version 1)
Quarter: 2021Q1

REPORT INFORMATION
  Report Type: Report from Study
  Country: US (occurrence: US)
  Receive Date: 20210129
  Receipt Date: 20210129
  Transmission Date: 20210419
  Serious: Yes (Other)
  Sender: FDA-Public Use
  Company Number: US-ASTRAZENECA-2021A012704

PATIENT
  Age: 54 Year
  Sex: Female

DRUGS (3)
  1. FASENRA [Suspect]
     Active Substance: BENRALIZUMAB
     Indication: ASTHMA
     Dosage: AT WEEKS 0, 4, AND 8 FOLLOWED BY EVERY 8 WEEKS THEREAFTER30.0MG UNKNOWN
     Route: 058
  2. ALBUTEROL. [Concomitant]
     Active Substance: ALBUTEROL
  3. PREDNISONE. [Concomitant]
     Active Substance: PREDNISONE

REACTIONS (10)
  - Pharyngeal paraesthesia [Recovering/Resolving]
  - Anaphylactic reaction [Recovering/Resolving]
  - Rash [Recovering/Resolving]
  - Headache [Not Recovered/Not Resolved]
  - Tachycardia [Recovering/Resolving]
  - Wheezing [Recovering/Resolving]
  - Dizziness [Recovering/Resolving]
  - Dysstasia [Recovering/Resolving]
  - Hypertension [Recovering/Resolving]
  - Fatigue [Not Recovered/Not Resolved]
